FAERS Safety Report 5873980-5 (Version None)
Quarter: 2008Q3

REPORT INFORMATION
  Report Type: 
  Country: None (occurrence: None)
  Receive Date: 20080908
  Receipt Date: 20080828
  Transmission Date: 20090109
  Serious: Yes (Other)
  Sender: FDA-Public Use
  Company Number: GB-MERCK-0809USA00228

PATIENT
  Age: 60 Year
  Sex: Male

DRUGS (1)
  1. DECADRON SRC [Suspect]
     Indication: BRAIN NEOPLASM
     Route: 048

REACTIONS (1)
  - DRUG INEFFECTIVE [None]
